FAERS Safety Report 11427363 (Version 1)
Quarter: 2015Q3

REPORT INFORMATION
  Report Type: Spontaneous
  Country: US (occurrence: US)
  Receive Date: 20150827
  Receipt Date: 20150827
  Transmission Date: 20151125
  Serious: Yes (Hospitalization)
  Sender: FDA-Public Use
  Company Number: US-SA-2015SA077425

PATIENT
  Age: 61 Year
  Sex: Male
  Weight: 63.5 kg

DRUGS (2)
  1. FABRAZYME [Suspect]
     Active Substance: AGALSIDASE BETA
     Route: 041
     Dates: start: 20130624
  2. FABRAZYME [Suspect]
     Active Substance: AGALSIDASE BETA
     Route: 041
     Dates: start: 20150501

REACTIONS (2)
  - Asthenia [Unknown]
  - Feeling abnormal [Unknown]

NARRATIVE: CASE EVENT DATE: 20150416
